FAERS Safety Report 8382453-X (Version None)
Quarter: 2012Q2

REPORT INFORMATION
  Report Type: 
  Country: None (occurrence: None)
  Receive Date: 20120524
  Receipt Date: 20120521
  Transmission Date: 20120825
  Serious: Yes (Hospitalization)
  Sender: FDA-Public Use
  Company Number: PHHY2012FR029473

PATIENT
  Age: 78 Year
  Sex: Female
  Weight: 62 kg

DRUGS (9)
  1. ZOLEDRONOC ACID [Suspect]
     Route: 042
     Dates: start: 20120101
  2. CHONDROSULF [Concomitant]
  3. LERCANIDIPINE [Concomitant]
  4. GLUCOSAMINE [Concomitant]
  5. CRESTOR [Concomitant]
     Dosage: UNK
  6. POTASSIUM CHLORIDE [Concomitant]
     Dosage: UNK
  7. EUPRESSYL [Concomitant]
     Dates: start: 20110101
  8. ASPIRIN [Concomitant]
     Dosage: UNK
  9. EZETIMIBE [Concomitant]
     Dates: start: 20100101

REACTIONS (3)
  - MALAISE [None]
  - DYSARTHRIA [None]
  - CEREBROVASCULAR ACCIDENT [None]
